FAERS Safety Report 8554910-4 (Version None)
Quarter: 2012Q3

REPORT INFORMATION
  Report Type: 
  Country: None (occurrence: None)
  Receive Date: 20120731
  Receipt Date: 20120726
  Transmission Date: 20120928
  Serious: Yes (Hospitalization)
  Sender: FDA-Public Use
  Company Number: PHHY2012IR064539

PATIENT

DRUGS (2)
  1. THIORIDAZINE HCL [Suspect]
  2. VALPROIC ACID [Suspect]

REACTIONS (7)
  - MUSCLE RIGIDITY [None]
  - ALTERED STATE OF CONSCIOUSNESS [None]
  - HYPERHIDROSIS [None]
  - BLOOD CREATINE PHOSPHOKINASE INCREASED [None]
  - CATATONIA [None]
  - NEUROLEPTIC MALIGNANT SYNDROME [None]
  - COGNITIVE DISORDER [None]
